FAERS Safety Report 4569196-5 (Version None)
Quarter: 2005Q1

REPORT INFORMATION
  Report Type: 
  Country: None (occurrence: None)
  Receive Date: 20050203
  Receipt Date: 20041213
  Transmission Date: 20050727
  Serious: Yes (Hospitalization)
  Sender: FDA-Public Use
  Company Number: FR-NOVOPROD-241095

PATIENT
  Age: 22 Year
  Sex: Female
  Weight: 141 kg

DRUGS (7)
  1. NORDITROPIN SIMPLEXX [Suspect]
     Indication: GROWTH HORMONE DEFICIENCY
     Dosage: .8 MG, QD
     Dates: start: 20010108
  2. AMOXICILLIN [Concomitant]
     Indication: ERYSIPELAS
     Dosage: 8 G, QD
     Route: 048
     Dates: start: 20040901
  3. HYDROCORTISONE [Concomitant]
     Dosage: 15 MG, QD
     Route: 048
     Dates: start: 19910601
  4. LEVOTHYROXINE SODIUM [Concomitant]
     Dosage: 175 UG, QD
     Route: 048
     Dates: start: 19910501
  5. MINIRIN ^AVENTIS PHARMA^ [Concomitant]
     Dosage: 8.6 MG, QD
     Route: 048
     Dates: start: 20031207
  6. PROVAMES [Concomitant]
  7. SURGESTONE [Concomitant]

REACTIONS (4)
  - ERYSIPELAS [None]
  - ERYTHEMA [None]
  - OEDEMA PERIPHERAL [None]
  - PYREXIA [None]
